FAERS Safety Report 7041587-2 (Version None)
Quarter: 2010Q4

REPORT INFORMATION
  Report Type: 
  Country: None (occurrence: None)
  Receive Date: 20101013
  Receipt Date: 20100423
  Transmission Date: 20110411
  Serious: No
  Sender: FDA-Public Use
  Company Number: US-ASTRAZENECA-2010SE18520

PATIENT
  Sex: Female

DRUGS (5)
  1. SYMBICORT [Suspect]
     Indication: ASTHMA
     Route: 055
     Dates: start: 20100201, end: 20100201
  2. THEOPHYLLINE [Concomitant]
  3. VENTOLIN [Concomitant]
  4. PREDNISONE [Concomitant]
  5. ZITHROMAX [Concomitant]

REACTIONS (2)
  - LOCAL SWELLING [None]
  - RASH [None]
